FAERS Safety Report 6627827-X (Version None)
Quarter: 2010Q1

REPORT INFORMATION
  Report Type: 
  Country: None (occurrence: None)
  Receive Date: 20100311
  Receipt Date: 20090114
  Transmission Date: 20100710
  Serious: No
  Sender: FDA-Public Use
  Company Number: A0763577A

PATIENT
  Age: 46 Year
  Sex: Male

DRUGS (2)
  1. NICORETTE [Suspect]
  2. NICOTINE POLACRILEX [Suspect]

REACTIONS (1)
  - DRUG INEFFECTIVE [None]
